FAERS Safety Report 9017107 (Version 5)
Quarter: 2013Q2

REPORT INFORMATION
  Report Type: Spontaneous
  Country: IE (occurrence: IE)
  Receive Date: 20130117
  Receipt Date: 20130405
  Transmission Date: 20140414
  Serious: Yes (Hospitalization)
  Sender: FDA-Public Use
  Company Number: PHFR2013IE000629

PATIENT
  Age: 52 Year
  Sex: Female

DRUGS (3)
  1. CLOZARIL [Suspect]
     Indication: SCHIZOPHRENIA
     Route: 048
     Dates: start: 20120711
  2. CLOZARIL [Suspect]
     Dosage: 300 MG,
     Route: 048
     Dates: start: 20121018
  3. CLOZARIL [Suspect]
     Dosage: 350 MG, QD
     Route: 048

REACTIONS (4)
  - Intracranial aneurysm [Unknown]
  - Subarachnoid haemorrhage [Unknown]
  - White blood cell count increased [Recovered/Resolved]
  - Neutrophil count increased [Recovered/Resolved]
